FAERS Safety Report 5179399-7 (Version None)
Quarter: 2006Q4

REPORT INFORMATION
  Report Type: 
  Country: None (occurrence: None)
  Receive Date: 20061211
  Receipt Date: 20061127
  Transmission Date: 20070319
  Serious: Yes (Hospitalization)
  Sender: FDA-Public Use
  Company Number: 2006P1000404

PATIENT
  Age: 78 Year
  Sex: Male
  Weight: 74 kg

DRUGS (9)
  1. RETEPLASE (RETEPLASE) [Suspect]
     Indication: ACUTE MYOCARDIAL INFARCTION
     Dosage: IV
     Route: 042
     Dates: start: 20060505, end: 20060505
  2. ABCIXIMAB (ABCIXIMAB) [Suspect]
     Indication: ACUTE MYOCARDIAL INFARCTION
     Dosage: IV
     Route: 042
     Dates: start: 20060505, end: 20060505
  3. ASPIRIN [Concomitant]
  4. ATORVASTATIN CALCIUM [Concomitant]
  5. GLIPIZIDE [Concomitant]
  6. BISOPROLOL FUMARATE [Concomitant]
  7. ALFUZOSIN [Concomitant]
  8. PERINDOPRIL ERBUMINE [Concomitant]
  9. ACETAMINOPHEN [Concomitant]

REACTIONS (1)
  - CORONARY ARTERY DISEASE [None]
